FAERS Safety Report 6288991-8 (Version None)
Quarter: 2009Q3

REPORT INFORMATION
  Report Type: 
  Country: None (occurrence: None)
  Receive Date: 20090729
  Receipt Date: 20090723
  Transmission Date: 20100115
  Serious: Yes (Other)
  Sender: FDA-Public Use
  Company Number: PHHY2009US30447

PATIENT
  Age: 55 Year
  Sex: Male

DRUGS (3)
  1. CYCLOSPORINE [Suspect]
     Indication: RENAL TRANSPLANT
     Dosage: UNK
  2. AZATHIOPRINE [Suspect]
     Indication: RENAL TRANSPLANT
     Dosage: UNK
  3. PREDNISONE [Suspect]
     Indication: RENAL TRANSPLANT
     Dosage: UNK

REACTIONS (11)
  - BLADDER OBSTRUCTION [None]
  - CYSTOSTOMY [None]
  - HYDRONEPHROSIS [None]
  - LYMPHOCELE [None]
  - NEPHROPATHY TOXIC [None]
  - PELVI-URETERIC OBSTRUCTION [None]
  - RENAL VESSEL DISORDER [None]
  - STENT PLACEMENT [None]
  - TRANSURETHRAL PROSTATECTOMY [None]
  - URETEROLYSIS PROCEDURE [None]
  - URINARY TRACT INFECTION [None]
